FAERS Safety Report 5317125-9 (Version None)
Quarter: 2007Q2

REPORT INFORMATION
  Report Type: 
  Country: None (occurrence: None)
  Receive Date: 20070504
  Receipt Date: 20070419
  Transmission Date: 20071010
  Serious: Yes (Hospitalization)
  Sender: FDA-Public Use
  Company Number: US-SHR-US-2006-038510

PATIENT
  Age: 58 Year
  Sex: Female

DRUGS (13)
  1. BETASERON [Suspect]
     Indication: RELAPSING-REMITTING MULTIPLE SCLEROSIS
     Dosage: 8 MIU, EVERY 2D
     Route: 058
     Dates: start: 20060909
  2. IBUPROFEN [Concomitant]
     Indication: PREMEDICATION
     Dosage: 600 MG, UNK
     Dates: start: 20060901
  3. GLYBURIDE [Concomitant]
  4. HEPARIN [Concomitant]
  5. LISINOPRIL [Concomitant]
  6. ASPIRIN [Concomitant]
     Dosage: 81 MG, 1X/DAY
  7. DILTIAZEM [Concomitant]
  8. ZETIA [Concomitant]
  9. ZOCOR [Concomitant]
  10. LOPRESSOR [Concomitant]
  11. TAPAZOLE [Concomitant]
  12. LASIX [Concomitant]
  13. PLAVIX [Concomitant]
     Dosage: 75 MG, UNK

REACTIONS (7)
  - CARDIAC FAILURE CONGESTIVE [None]
  - COUGH [None]
  - HYPOTHYROIDISM [None]
  - RHINORRHOEA [None]
  - SINUS TACHYCARDIA [None]
  - VENTRICULAR EXTRASYSTOLES [None]
  - VENTRICULAR TACHYCARDIA [None]
